FAERS Safety Report 7773434-5 (Version None)
Quarter: 2011Q3

REPORT INFORMATION
  Report Type: 
  Country: None (occurrence: None)
  Receive Date: 20110922
  Receipt Date: 20110913
  Transmission Date: 20111222
  Serious: Yes (Death, Hospitalization)
  Sender: FDA-Public Use
  Company Number: US-MPIJNJ-2011-03592

PATIENT
  Sex: Male
  Weight: 79.093 kg

DRUGS (11)
  1. DEXAMETHASONE [Suspect]
     Indication: MULTIPLE MYELOMA
     Dosage: 20 MG, 1/WEEK
     Route: 048
     Dates: start: 20110414
  2. COUMADIN [Concomitant]
     Indication: PRODUCT USED FOR UNKNOWN INDICATION
  3. NORCO [Concomitant]
     Indication: PRODUCT USED FOR UNKNOWN INDICATION
  4. FOLGARD                            /01079901/ [Concomitant]
     Indication: PRODUCT USED FOR UNKNOWN INDICATION
  5. TRACLEER [Concomitant]
     Indication: PRODUCT USED FOR UNKNOWN INDICATION
  6. ALLOPURINOL [Concomitant]
     Indication: PRODUCT USED FOR UNKNOWN INDICATION
  7. ZOFRAN [Concomitant]
     Indication: PRODUCT USED FOR UNKNOWN INDICATION
  8. AMBIEN [Concomitant]
     Indication: PRODUCT USED FOR UNKNOWN INDICATION
  9. VELCADE [Suspect]
     Indication: MULTIPLE MYELOMA
     Dosage: 1.3 MG/M2, CYCLIC
     Route: 042
     Dates: start: 20110414, end: 20110512
  10. NIACIN [Concomitant]
     Indication: PRODUCT USED FOR UNKNOWN INDICATION
  11. LOVENOX [Concomitant]
     Indication: PRODUCT USED FOR UNKNOWN INDICATION

REACTIONS (5)
  - RENAL FAILURE ACUTE [None]
  - RESPIRATORY FAILURE [None]
  - AMYLOIDOSIS [None]
  - OEDEMA PERIPHERAL [None]
  - HYPOXIA [None]
